FAERS Safety Report 22168976 (Version 1)
Quarter: 2023Q2

REPORT INFORMATION
  Report Type: Spontaneous
  Country: GR (occurrence: GR)
  Receive Date: 20230403
  Receipt Date: 20230403
  Transmission Date: 20230722
  Serious: Yes (Life-Threatening, Hospitalization, Other)
  Sender: FDA-Public Use
  Company Number: GR-STRIDES ARCOLAB LIMITED-2023SP004529

PATIENT
  Age: 57 Year
  Sex: Female

DRUGS (20)
  1. DEXAMETHASONE [Suspect]
     Active Substance: DEXAMETHASONE
     Indication: Hodgkin^s disease refractory
     Dosage: UNK, CYCLICAL, RECEIVED UNDER DHAP REGIMEN
     Route: 065
  2. DEXAMETHASONE [Suspect]
     Active Substance: DEXAMETHASONE
     Indication: Breast cancer
     Dosage: UNK, CYCLICAL, RECEIVED UNDER DICE REGIMEN
     Route: 065
  3. ETOPOSIDE [Suspect]
     Active Substance: ETOPOSIDE
     Indication: Hodgkin^s disease refractory
     Dosage: UNK, CYCLICAL (RECEIVED UNDER DICE REGIMEN)
     Route: 065
  4. ETOPOSIDE [Suspect]
     Active Substance: ETOPOSIDE
     Indication: Breast cancer
  5. DOXORUBICIN [Suspect]
     Active Substance: DOXORUBICIN
     Indication: Hodgkin^s disease refractory
     Dosage: UNK, CYCLICAL RECEIVED UNDER ABVD REGIMEN
     Route: 065
  6. DOXORUBICIN [Suspect]
     Active Substance: DOXORUBICIN
     Indication: Breast cancer
  7. BLEOMYCIN [Suspect]
     Active Substance: BLEOMYCIN SULFATE
     Indication: Hodgkin^s disease refractory
     Dosage: UNK, CYCLICAL, RECEIVED UNDER ABVD REGIMEN
     Route: 065
  8. BLEOMYCIN [Suspect]
     Active Substance: BLEOMYCIN SULFATE
     Indication: Breast cancer
  9. VINBLASTINE [Suspect]
     Active Substance: VINBLASTINE
     Indication: Hodgkin^s disease refractory
     Dosage: UNK, CYCLICAL, RECEIVED UNDER ABVD REGIMEN
     Route: 065
  10. VINBLASTINE [Suspect]
     Active Substance: VINBLASTINE
     Indication: Breast cancer
  11. DACARBAZINE [Suspect]
     Active Substance: DACARBAZINE
     Indication: Hodgkin^s disease refractory
     Dosage: UNK, CYCLICAL, RECEIVED UNDER ABVD REGIMEN
     Route: 065
  12. DACARBAZINE [Suspect]
     Active Substance: DACARBAZINE
     Indication: Breast cancer
  13. CISPLATIN [Suspect]
     Active Substance: CISPLATIN
     Indication: Hodgkin^s disease refractory
     Dosage: UNK, CYCLICAL, RECEIVED UNDER DHAP REGIMEN
     Route: 065
  14. CISPLATIN [Suspect]
     Active Substance: CISPLATIN
     Indication: Breast cancer
     Dosage: UNK, CYCLICAL, RECEIVED UNDER DICE REGIMEN
     Route: 065
  15. CYTARABINE [Suspect]
     Active Substance: CYTARABINE
     Indication: Hodgkin^s disease refractory
     Dosage: UNK, CYCLICAL, RECEIVED UNDER DHAP REGIMEN
     Route: 065
  16. CYTARABINE [Suspect]
     Active Substance: CYTARABINE
     Indication: Breast cancer
  17. IFOSFAMIDE [Suspect]
     Active Substance: IFOSFAMIDE
     Indication: Hodgkin^s disease refractory
     Dosage: UNK, CYCLICAL (RECEIVED UNDER DICE REGIMEN)
     Route: 065
  18. IFOSFAMIDE [Suspect]
     Active Substance: IFOSFAMIDE
     Indication: Breast cancer
  19. BRENTUXIMAB VEDOTIN [Suspect]
     Active Substance: BRENTUXIMAB VEDOTIN
     Indication: Hodgkin^s disease refractory
     Dosage: UNK, RECEIVED A TOTAL OF 13 INFUSIONS
     Route: 042
  20. BRENTUXIMAB VEDOTIN [Suspect]
     Active Substance: BRENTUXIMAB VEDOTIN
     Indication: Breast cancer

REACTIONS (6)
  - Haematotoxicity [Recovered/Resolved]
  - Febrile neutropenia [Recovered/Resolved]
  - Anaemia [Recovered/Resolved]
  - Drug ineffective [Unknown]
  - Toxicity to various agents [Recovered/Resolved]
  - Off label use [Unknown]
